FAERS Safety Report 15357823 (Version 1)
Quarter: 2018Q4

REPORT INFORMATION
  Report Type: Spontaneous
  Country: EG (occurrence: EG)
  Receive Date: 20180906
  Receipt Date: 20180906
  Transmission Date: 20190204
  Serious: Yes (Other)
  Sender: FDA-Public Use
  Company Number: EG-SA-2018SA148314

PATIENT
  Age: 67 Year
  Sex: Female

DRUGS (8)
  1. CEFEPIME HYDROCHLORIDE. [Interacting]
     Active Substance: CEFEPIME HYDROCHLORIDE
     Dosage: 2 G, QD
  2. FUROSEMIDE. [Interacting]
     Active Substance: FUROSEMIDE
  3. MAREVAN [Suspect]
     Active Substance: WARFARIN SODIUM
  4. CALCIMATE [Suspect]
     Active Substance: CALCIUM\VITAMIN D
  5. SODIUM BICARBONATE. [Suspect]
     Active Substance: SODIUM BICARBONATE
  6. CONCOR [Suspect]
     Active Substance: BISOPROLOL FUMARATE
  7. OMEPRAZOLE. [Suspect]
     Active Substance: OMEPRAZOLE
  8. CLEXANE [Suspect]
     Active Substance: ENOXAPARIN SODIUM

REACTIONS (5)
  - Lower respiratory tract infection [Unknown]
  - Altered state of consciousness [Unknown]
  - Drug interaction [Unknown]
  - Coma scale abnormal [Unknown]
  - Neurotoxicity [Unknown]
